FAERS Safety Report 15302233 (Version 2)
Quarter: 2018Q3

REPORT INFORMATION
  Report Type: Spontaneous
  Country: CN (occurrence: CN)
  Receive Date: 20180821
  Receipt Date: 20180827
  Transmission Date: 20181010
  Serious: Yes (Hospitalization)
  Sender: FDA-Public Use
  Company Number: CN-PFIZER INC-2018334237

PATIENT
  Age: 9 Year
  Sex: Male

DRUGS (7)
  1. AMBROXOL HYDROCHLORIDE [Concomitant]
     Active Substance: AMBROXOL HYDROCHLORIDE
     Indication: BACTERIAL INFECTION
  2. CEFTRIAXONE. [Interacting]
     Active Substance: CEFTRIAXONE
     Indication: INFECTION
     Dosage: 2 G, 2X/DAY (2 G, BID FOR 50 DAYS FROM MAY 3RD TO JUNE 21ST)
     Route: 042
     Dates: start: 20130503, end: 20130621
  3. VANCOMYCIN [Interacting]
     Active Substance: VANCOMYCIN
     Indication: FUNGAL INFECTION
     Dosage: 0.5 G, 3X/DAY (0.5 G, Q8H)
     Route: 042
     Dates: start: 20130629
  4. FLUCONAZOLE. [Suspect]
     Active Substance: FLUCONAZOLE
     Indication: FUNGAL INFECTION
     Dosage: 0.4 G, 1X/DAY (0.4 G, QD)
     Route: 042
     Dates: start: 20130629
  5. VANCOMYCIN [Interacting]
     Active Substance: VANCOMYCIN
     Indication: BACTERIAL INFECTION
  6. FLUCONAZOLE. [Interacting]
     Active Substance: FLUCONAZOLE
     Indication: BACTERIAL INFECTION
     Dosage: 0.2 G, 1X/DAY (DOSAGE OF FLUCONAZOLE WAS REDUCED)
  7. AMBROXOL HYDROCHLORIDE [Concomitant]
     Active Substance: AMBROXOL HYDROCHLORIDE
     Indication: FUNGAL INFECTION
     Dosage: 90 MG, 1X/DAY (90 MG, QD)
     Route: 042
     Dates: start: 20130629

REACTIONS (4)
  - Drug interaction [Unknown]
  - Liver disorder [Recovering/Resolving]
  - Cholelithiasis [Recovering/Resolving]
  - Gallbladder disorder [Recovering/Resolving]
